FAERS Safety Report 6945999-4 (Version None)
Quarter: 2010Q3

REPORT INFORMATION
  Report Type: 
  Country: None (occurrence: None)
  Receive Date: 20100827
  Receipt Date: 20100226
  Transmission Date: 20110219
  Serious: No
  Sender: FDA-Public Use
  Company Number: A0847060A

PATIENT
  Age: 4 Year
  Sex: Male

DRUGS (2)
  1. ZOVIRAX [Suspect]
     Route: 048
     Dates: end: 20100219
  2. DIFLUCAN [Concomitant]

REACTIONS (3)
  - DYSKINESIA [None]
  - LIP DRY [None]
  - TREMOR [None]
